FAERS Safety Report 11806832 (Version 2)
Quarter: 2015Q4

REPORT INFORMATION
  Report Type: Spontaneous
  Country: SK (occurrence: SK)
  Receive Date: 20151207
  Receipt Date: 20151222
  Transmission Date: 20160305
  Serious: Yes (Life-Threatening, Hospitalization)
  Sender: FDA-Public Use
  Company Number: SK-SA-2015SA203328

PATIENT
  Age: 31 Year
  Sex: Female

DRUGS (11)
  1. CLOPIDOGREL BISULFATE. [Suspect]
     Active Substance: CLOPIDOGREL BISULFATE
     Indication: ANTICOAGULANT THERAPY
     Route: 065
  2. CEFTRIAXONE. [Concomitant]
     Active Substance: CEFTRIAXONE
  3. WARFARIN SODIUM. [Suspect]
     Active Substance: WARFARIN SODIUM
     Indication: ANTICOAGULANT THERAPY
     Route: 048
     Dates: start: 2012, end: 2012
  4. ENOXAPARIN SODIUM. [Suspect]
     Active Substance: ENOXAPARIN SODIUM
     Indication: ANTICOAGULANT THERAPY
     Dosage: 12 000 ANTI-XA/0, 8 ML
     Route: 065
     Dates: start: 2012, end: 2012
  5. ENOXAPARIN SODIUM. [Suspect]
     Active Substance: ENOXAPARIN SODIUM
     Indication: ANTICOAGULANT THERAPY
     Dosage: 8000 ANTI-XA IU/0, 8 ML
     Route: 065
     Dates: start: 2012
  6. HEPARIN [Suspect]
     Active Substance: HEPARIN SODIUM
     Indication: ANTICOAGULANT THERAPY
     Route: 065
  7. CLAVULANIC ACID [Concomitant]
     Active Substance: CLAVULANIC ACID
  8. ENOXAPARIN SODIUM. [Suspect]
     Active Substance: ENOXAPARIN SODIUM
     Indication: ANTICOAGULANT THERAPY
     Dosage: 8000 ANTI-XA IU/0, 8 ML, 1-0-0; 10000 ANTI-XA IU/1,0ML, 0-0-1
     Route: 058
     Dates: start: 2012, end: 2012
  9. WARFARIN SODIUM. [Suspect]
     Active Substance: WARFARIN SODIUM
     Indication: ANTICOAGULANT THERAPY
     Route: 048
     Dates: start: 2012, end: 2012
  10. AMOXICILLIN. [Concomitant]
     Active Substance: AMOXICILLIN
  11. ACETYLSALICYLIC ACID [Suspect]
     Active Substance: ASPIRIN
     Indication: ANTICOAGULANT THERAPY
     Route: 065

REACTIONS (11)
  - Purpura [Recovering/Resolving]
  - Drug ineffective [Unknown]
  - Skin necrosis [Recovering/Resolving]
  - Pain [Recovering/Resolving]
  - Haemorrhage [Unknown]
  - Product use issue [Unknown]
  - Skin lesion [Recovering/Resolving]
  - Haematoma [Unknown]
  - Abdominal wall haematoma [Unknown]
  - Venous thrombosis [Recovering/Resolving]
  - Pigmentation disorder [Recovering/Resolving]

NARRATIVE: CASE EVENT DATE: 2012
